FAERS Safety Report 9516378 (Version 1)
Quarter: 2013Q1

REPORT INFORMATION
  Report Type: Spontaneous
  Country: US (occurrence: None)
  Receive Date: 20130305
  Receipt Date: 20130305
  Transmission Date: 20140127
  Serious: Yes (Other)
  Sender: FDA-Public Use
  Company Number: 163-21880-12113364

PATIENT
  Age: 66 Year
  Sex: Female
  Weight: 84.55 kg

DRUGS (5)
  1. REVLIMID [Suspect]
     Indication: 5Q MINUS SYNDROME
     Dosage: 1 IN 1 D
     Route: 048
     Dates: start: 20120810, end: 20121114
  2. VIDAZA [Concomitant]
  3. LEVOTHYROXINE [Concomitant]
  4. PRAVACHOL [Concomitant]
  5. OMEGA 3 FAFFTY ACID [Concomitant]

REACTIONS (1)
  - Rash [None]
